FAERS Safety Report 11422023 (Version 1)
Quarter: 2015Q3

REPORT INFORMATION
  Report Type: Report from Study
  Country: IE (occurrence: IE)
  Receive Date: 20150827
  Receipt Date: 20150827
  Transmission Date: 20151125
  Serious: Yes (Hospitalization)
  Sender: FDA-Public Use
  Company Number: IE-AMGEN-IRLSL2015087150

PATIENT
  Age: 59 Year
  Sex: Female

DRUGS (9)
  1. EXFORGE [Concomitant]
     Active Substance: AMLODIPINE BESYLATE\VALSARTAN
     Dosage: 165 MG, ONCE DAILY
  2. ATENOLOL. [Concomitant]
     Active Substance: ATENOLOL
     Dosage: 25 MG, ONCE DAILY
  3. VALOID                             /00014902/ [Concomitant]
     Active Substance: CYCLIZINE HYDROCHLORIDE
     Dosage: 50 MG, TDS
  4. MOTILIUM [Concomitant]
     Active Substance: DOMPERIDONE
     Dosage: 10 MG, TDS
  5. EMEND [Concomitant]
     Active Substance: APREPITANT
     Dosage: 80 MG, ONCE DAILY
  6. MYCOSTATIN [Concomitant]
     Active Substance: NYSTATIN
     Dosage: 1 ML, QDS
  7. NEULASTA [Suspect]
     Active Substance: PEGFILGRASTIM
     Indication: BREAST CANCER
     Dosage: 6 MG, UNK
     Route: 058
     Dates: start: 20150808
  8. TRITACE [Concomitant]
     Active Substance: RAMIPRIL
     Dosage: 10 MG, ONCE DAILY
  9. DEXAMETHASONE. [Concomitant]
     Active Substance: DEXAMETHASONE
     Dosage: 8 MG, ONCE DAILY

REACTIONS (1)
  - Body temperature increased [Recovered/Resolved]
